FAERS Safety Report 8875809 (Version 2)
Quarter: 2012Q4

REPORT INFORMATION
  Report Type: 
  Country: US (occurrence: US)
  Receive Date: 20121030
  Receipt Date: 20121204
  Transmission Date: 20130627
  Serious: Yes (Death)
  Sender: FDA-Public Use
  Company Number: US-GLAXOSMITHKLINE-A0998384A

PATIENT
  Age: 72 Year
  Sex: Male

DRUGS (6)
  1. VOTRIENT [Suspect]
     Indication: RENAL CELL CARCINOMA
     Dosage: 4TAB Per day
     Route: 048
     Dates: start: 20120731, end: 20121012
  2. LISINOPRIL [Concomitant]
  3. BISOPROLOL + HYDROCHLOROTHIAZIDE [Concomitant]
  4. SIMVASTATIN [Concomitant]
  5. FENOFIBRATE [Concomitant]
  6. CLOPIDOGREL [Concomitant]
     Route: 048
     Dates: start: 20120730

REACTIONS (1)
  - Renal cancer [Fatal]
